FAERS Safety Report 18579542 (Version 1)
Quarter: 2020Q4

REPORT INFORMATION
  Report Type: Spontaneous
  Country: US (occurrence: US)
  Receive Date: 20201204
  Receipt Date: 20201204
  Transmission Date: 20210114
  Serious: No
  Sender: FDA-Public Use
  Company Number: US-SA-2020SA348499

PATIENT

DRUGS (11)
  1. AZELASTINE. [Concomitant]
     Active Substance: AZELASTINE HYDROCHLORIDE
  2. DESVENLAFAXINE. [Concomitant]
     Active Substance: DESVENLAFAXINE
  3. LEVOTHYROXIN [Concomitant]
     Active Substance: LEVOTHYROXINE
  4. FLUTICASONE. [Concomitant]
     Active Substance: FLUTICASONE
  5. DUPIXENT [Suspect]
     Active Substance: DUPILUMAB
     Indication: ASTHMA
     Dosage: 300 MG, QOW
     Route: 058
     Dates: start: 20190430
  6. ATENOLOL. [Concomitant]
     Active Substance: ATENOLOL
  7. GLUCOSAMINE [Concomitant]
     Active Substance: GLUCOSAMINE
  8. SYMBICORT [Concomitant]
     Active Substance: BUDESONIDE\FORMOTEROL FUMARATE DIHYDRATE
  9. TAMSULOSIN [Concomitant]
     Active Substance: TAMSULOSIN
  10. GABAPENTIN. [Concomitant]
     Active Substance: GABAPENTIN
  11. ROSUVASTATIN. [Concomitant]
     Active Substance: ROSUVASTATIN

REACTIONS (3)
  - COVID-19 [Recovered/Resolved]
  - Sinusitis [Recovered/Resolved]
  - SARS-CoV-2 test positive [Recovered/Resolved]

NARRATIVE: CASE EVENT DATE: 20201025
